FAERS Safety Report 21411373 (Version 1)
Quarter: 2022Q4

REPORT INFORMATION
  Report Type: Spontaneous
  Country: DE (occurrence: DE)
  Receive Date: 20221005
  Receipt Date: 20221005
  Transmission Date: 20230113
  Serious: Yes (Hospitalization)
  Sender: FDA-Public Use
  Company Number: DE-ANIPHARMA-2022-DE-000173

PATIENT
  Age: 61 Year
  Sex: Male
  Weight: 85 kg

DRUGS (3)
  1. CANDESARTAN CILEXETIL [Suspect]
     Active Substance: CANDESARTAN CILEXETIL
     Indication: Product used for unknown indication
     Dosage: 32 MG DAILY
     Route: 048
  2. MARCUMAR [Suspect]
     Active Substance: PHENPROCOUMON
     Dosage: 3 MG DAILY / 3 MG DAILY
     Route: 048
  3. SYMBICORT [Concomitant]
     Active Substance: BUDESONIDE\FORMOTEROL FUMARATE DIHYDRATE
     Dosage: NEEDS, DRY POWDER INHALER
     Route: 065

REACTIONS (5)
  - Ureterolithiasis [Recovering/Resolving]
  - Flank pain [Recovering/Resolving]
  - Product prescribing error [Unknown]
  - Haematuria [Recovering/Resolving]
  - Renal failure [Recovering/Resolving]
